FAERS Safety Report 9728500 (Version 4)
Quarter: 2014Q1

REPORT INFORMATION
  Report Type: Spontaneous
  Country: BR (occurrence: BR)
  Receive Date: 20131204
  Receipt Date: 20140113
  Transmission Date: 20141002
  Serious: Yes (Other)
  Sender: FDA-Public Use
  Company Number: BR-NOVOPROD-394075

PATIENT
  Age: 81 Year
  Sex: Male
  Weight: 70 kg

DRUGS (7)
  1. NOVOLIN N PENFILL [Suspect]
     Indication: TYPE 2 DIABETES MELLITUS
     Dosage: 60 IU, QD (32 IU IN MORNING + 28 IU AT NIGHT)
     Route: 065
     Dates: start: 2002
  2. NOVOLIN N PENFILL [Suspect]
     Dosage: 38 IU
     Route: 065
  3. GLIFAGE [Concomitant]
     Indication: ANGINA PECTORIS
     Dosage: 3 TAB, TID
     Route: 065
  4. SIMVASTATIN [Concomitant]
     Indication: PRODUCT USED FOR UNKNOWN INDICATION
     Dosage: 1 TAB (40 MG)
     Route: 048
  5. VASTAREL [Concomitant]
     Indication: PRODUCT USED FOR UNKNOWN INDICATION
     Dosage: 2 TAB
     Route: 065
  6. MONOCORDIL [Concomitant]
     Indication: PRODUCT USED FOR UNKNOWN INDICATION
     Dosage: 2 TAB (40 MG)
  7. SELOZOK [Concomitant]
     Indication: PRODUCT USED FOR UNKNOWN INDICATION
     Dosage: 1 TAB (50 MG)
     Route: 065

REACTIONS (5)
  - Macular oedema [Unknown]
  - Hyperglycaemia [Unknown]
  - Device failure [Unknown]
  - Device malfunction [Unknown]
  - Expired device used [Unknown]
